FAERS Safety Report 12538431 (Version 4)
Quarter: 2016Q4

REPORT INFORMATION
  Report Type: Report from Study
  Country: CN (occurrence: CN)
  Receive Date: 20160707
  Receipt Date: 20161025
  Transmission Date: 20170207
  Serious: Yes (Hospitalization, Other)
  Sender: FDA-Public Use
  Company Number: CN-BAXALTA-2016BLT004534AA

PATIENT
  Sex: Male
  Weight: 62 kg

DRUGS (6)
  1. ADVATE [Suspect]
     Active Substance: ANTIHEMOPHILIC FACTOR, HUMAN RECOMBINANT
     Dosage: 500 IU, 1X A WEEK
     Route: 042
  2. KOGENATE FS [Concomitant]
     Active Substance: ANTIHEMOPHILIC FACTOR, HUMAN RECOMBINANT
     Indication: FACTOR VIII DEFICIENCY
     Dosage: PAST THERAPY
     Route: 065
     Dates: end: 201502
  3. ADVATE [Suspect]
     Active Substance: ANTIHEMOPHILIC FACTOR, HUMAN RECOMBINANT
     Indication: HAEMORRHAGE
     Dosage: 500 IU, 1X A WEEK OR EVERY 2 WK
     Route: 042
  4. ADVATE [Suspect]
     Active Substance: ANTIHEMOPHILIC FACTOR, HUMAN RECOMBINANT
     Dosage: 750 IU FOR SEVERE BLEEDING
     Route: 042
     Dates: start: 2016, end: 2016
  5. ADVATE [Suspect]
     Active Substance: ANTIHEMOPHILIC FACTOR, HUMAN RECOMBINANT
     Indication: FACTOR VIII DEFICIENCY
     Dosage: 250 IU
     Route: 042
  6. ADVATE [Suspect]
     Active Substance: ANTIHEMOPHILIC FACTOR, HUMAN RECOMBINANT
     Indication: PROPHYLAXIS
     Dosage: 500 IU FOR MILD BLEEDING
     Route: 042
     Dates: start: 2016, end: 2016

REACTIONS (4)
  - Factor VIII inhibition [Unknown]
  - Drug effect decreased [Unknown]
  - Haemarthrosis [Recovered/Resolved]
  - Nephrotic syndrome [Recovering/Resolving]

NARRATIVE: CASE EVENT DATE: 2016
